FAERS Safety Report 5246783-2 (Version None)
Quarter: 2007Q1

REPORT INFORMATION
  Report Type: 
  Country: None (occurrence: None)
  Receive Date: 20070226
  Receipt Date: 20070214
  Transmission Date: 20070707
  Serious: Yes (Life-Threatening, Other)
  Sender: FDA-Public Use
  Company Number: FR-BRISTOL-MYERS SQUIBB COMPANY-13682638

PATIENT
  Age: 60 Year
  Sex: Female

DRUGS (6)
  1. VIDEX EC [Suspect]
     Indication: HIV INFECTION
     Route: 048
  2. PLAVIX [Suspect]
     Indication: ACUTE MYOCARDIAL INFARCTION
     Route: 048
  3. ALDACTAZINE [Suspect]
     Route: 048
  4. KREDEX [Suspect]
     Indication: ARRHYTHMIA
     Route: 048
  5. EPIVIR [Suspect]
     Indication: HIV INFECTION
     Route: 048
  6. KALETRA [Suspect]
     Indication: HIV INFECTION
     Route: 048

REACTIONS (6)
  - ACINETOBACTER BACTERAEMIA [None]
  - ARRHYTHMIA SUPRAVENTRICULAR [None]
  - CARDIAC FAILURE [None]
  - MYOCARDIAL INFARCTION [None]
  - PULMONARY OEDEMA [None]
  - URINARY TRACT INFECTION ENTEROCOCCAL [None]
